FAERS Safety Report 7953960-6 (Version None)
Quarter: 2011Q4

REPORT INFORMATION
  Report Type: 
  Country: None (occurrence: None)
  Receive Date: 20111202
  Receipt Date: 20111130
  Transmission Date: 20120403
  Serious: Yes (Life-Threatening, Hospitalization)
  Sender: FDA-Public Use
  Company Number: DE-B.I. PHARMACEUTICALS,INC./RIDGEFIELD-2011-DE-06619DE

PATIENT
  Age: 75 Year
  Sex: Female
  Weight: 45 kg

DRUGS (7)
  1. METOPROLOL TARTRATE [Concomitant]
     Dosage: 1 ANZ
  2. PRAVASTATIN 40 [Concomitant]
     Dosage: 1 ANZ
  3. ASPIRIN [Concomitant]
     Dosage: 1 ANZ
  4. L-THYROXIN 75 [Concomitant]
     Dosage: 1 ANZ
  5. RAMIPRIL 2,5/12,5 [Concomitant]
     Dosage: 1 ANZ
  6. PRADAXA [Suspect]
     Dosage: 220 MG
  7. AMIODARON 200 [Concomitant]
     Dosage: 1 ANZ

REACTIONS (3)
  - LOWER GASTROINTESTINAL HAEMORRHAGE [None]
  - OEDEMA MUCOSAL [None]
  - LARGE INTESTINAL ULCER [None]
